FAERS Safety Report 6372197-8 (Version None)
Quarter: 2009Q3

REPORT INFORMATION
  Report Type: 
  Country: None (occurrence: None)
  Receive Date: 20090924
  Receipt Date: 20090915
  Transmission Date: 20100115
  Serious: Yes (Hospitalization)
  Sender: FDA-Public Use
  Company Number: US-BIOGENIDEC-2008BI022744

PATIENT
  Age: 67 Year
  Sex: Female

DRUGS (2)
  1. TYSABRI [Suspect]
     Indication: MULTIPLE SCLEROSIS
     Route: 042
     Dates: start: 20071031, end: 20080701
  2. TYSABRI [Suspect]
     Route: 042
     Dates: start: 20090701

REACTIONS (7)
  - ABASIA [None]
  - CYSTITIS [None]
  - DEVICE MIGRATION [None]
  - INFECTION [None]
  - POST PROCEDURAL INFECTION [None]
  - SINUSITIS [None]
  - STAPHYLOCOCCAL INFECTION [None]
